FAERS Safety Report 8054236-1 (Version None)
Quarter: 2012Q1

REPORT INFORMATION
  Report Type: 
  Country: None (occurrence: None)
  Receive Date: 20120118
  Receipt Date: 20120111
  Transmission Date: 20120608
  Serious: Yes (Other)
  Sender: FDA-Public Use
  Company Number: US-ROCHE-794414

PATIENT
  Sex: Male
  Weight: 63.56 kg

DRUGS (3)
  1. TRIAMCINOLONE [Concomitant]
  2. ACCUTANE [Suspect]
     Indication: ACNE
     Route: 065
     Dates: start: 20060106, end: 20060630
  3. VICODIN [Concomitant]

REACTIONS (7)
  - INFLAMMATORY BOWEL DISEASE [None]
  - SUICIDAL IDEATION [None]
  - IRRITABLE BOWEL SYNDROME [None]
  - DERMATITIS ATOPIC [None]
  - INTESTINAL OBSTRUCTION [None]
  - DRY SKIN [None]
  - DERMATITIS CONTACT [None]
